FAERS Safety Report 4791852-4 (Version None)
Quarter: 2005Q4

REPORT INFORMATION
  Report Type: 
  Country: None (occurrence: None)
  Receive Date: 20051005
  Receipt Date: 20050927
  Transmission Date: 20060501
  Serious: Yes (Life-Threatening, Other)
  Sender: FDA-Public Use
  Company Number: 2005135497

PATIENT
  Age: 65 Year
  Sex: Female
  Weight: 58.9676 kg

DRUGS (2)
  1. NEURONTIN [Suspect]
     Indication: NEUROPATHY
     Dosage: 300 MG (300 MG, 1 DOSE), ORAL
     Route: 048
     Dates: start: 20050920, end: 20050920
  2. CATAPRES [Concomitant]

REACTIONS (4)
  - DIZZINESS [None]
  - LOSS OF CONSCIOUSNESS [None]
  - SYNCOPE [None]
  - VOMITING [None]
